FAERS Safety Report 4791867-6 (Version None)
Quarter: 2005Q4

REPORT INFORMATION
  Report Type: 
  Country: None (occurrence: None)
  Receive Date: 20051005
  Receipt Date: 20050923
  Transmission Date: 20060501
  Serious: Yes (Disabling)
  Sender: FDA-Public Use
  Company Number: 2005134534

PATIENT
  Sex: Male

DRUGS (1)
  1. INSPRA [Suspect]
     Indication: ILL-DEFINED DISORDER
     Dosage: ORAL
     Route: 048

REACTIONS (3)
  - MOBILITY DECREASED [None]
  - MUSCLE SPASMS [None]
  - SLEEP DISORDER [None]
